FAERS Safety Report 4774661-1 (Version None)
Quarter: 2005Q3

REPORT INFORMATION
  Report Type: 
  Country: None (occurrence: None)
  Receive Date: 20050919
  Receipt Date: 20050905
  Transmission Date: 20060218
  Serious: Yes (Death, Hospitalization)
  Sender: FDA-Public Use
  Company Number: 2005124356

PATIENT
  Age: 48 Year
  Sex: Male

DRUGS (5)
  1. VIAGRA [Suspect]
     Indication: ERECTILE DYSFUNCTION
     Dosage: 50 MG (50 MG, 1 IN 1 D), ORAL
     Route: 048
     Dates: start: 20050810, end: 20050810
  2. GLYBURIDE [Concomitant]
  3. METFORMIN HCL [Concomitant]
  4. HYDROCHLOROTHIAZIDE [Concomitant]
  5. CHORPROPAMIDE (CHLORPROPAMIDE) [Concomitant]

REACTIONS (4)
  - CARDIAC ARREST [None]
  - CHEST PAIN [None]
  - HYPOAESTHESIA [None]
  - RESPIRATORY FAILURE [None]
